FAERS Safety Report 7430203 (Version 2)
Quarter: 2012Q4

REPORT INFORMATION
  Report Type: 
  Country: US (occurrence: US)
  Receive Date: 20100623
  Receipt Date: 20121220
  Transmission Date: 20130627
  Serious: No
  Sender: FDA-Public Use
  Company Number: US-PFIZER INC-2007096276

PATIENT
  Age: 62 Year
  Sex: Female
  Weight: 71.21 kg

DRUGS (6)
  1. SUTENT [Suspect]
     Indication: KIDNEY CANCER
     Dosage: 50 mg, 1x/day
     Dates: start: 20070717
  2. LEVOTHYROXINE [Concomitant]
     Dosage: 50 mcg
  3. AMITRIPTYLINE [Concomitant]
     Dosage: 20 mg, UNK
  4. PROTONIX [Concomitant]
     Dosage: 40 mg, UNK
  5. WARFARIN [Concomitant]
     Dosage: 1 mg, UNK
  6. MEGESTROL [Concomitant]
     Dosage: 40 mg, UNK

REACTIONS (9)
  - Skin lesion [Not Recovered/Not Resolved]
  - Red blood cell count decreased [Unknown]
  - Haemoglobin decreased [Unknown]
  - Haematocrit decreased [Unknown]
  - Blood urea increased [Unknown]
  - Blood thyroid stimulating hormone increased [Unknown]
  - Blood calcium decreased [Unknown]
  - Protein total decreased [Unknown]
  - Blood albumin decreased [Unknown]
